FAERS Safety Report 5695007-0 (Version None)
Quarter: 2008Q2

REPORT INFORMATION
  Report Type: 
  Country: None (occurrence: None)
  Receive Date: 20080404
  Receipt Date: 20080324
  Transmission Date: 20081010
  Serious: Yes (Other)
  Sender: FDA-Public Use
  Company Number: US-PFIZER INC-2007077336

PATIENT
  Sex: Male
  Weight: 105 kg

DRUGS (8)
  1. SUTENT [Suspect]
     Indication: PROSTATE CANCER
     Route: 048
     Dates: start: 20070823, end: 20070905
  2. SUTENT [Suspect]
     Route: 048
     Dates: start: 20070913
  3. TAXOTERE [Suspect]
     Indication: PROSTATE CANCER
     Route: 042
     Dates: start: 20070823, end: 20070823
  4. TAXOTERE [Suspect]
     Route: 042
  5. PREDNISONE [Suspect]
     Route: 048
     Dates: start: 20070823
  6. ALL OTHER THERAPEUTIC PRODUCTS [Concomitant]
     Indication: PROSTATE CANCER
     Route: 023
  7. EXCEDRIN (MIGRAINE) [Concomitant]
     Indication: PAIN
     Dosage: TEXT:2 PILLS
     Route: 048
     Dates: start: 20070101
  8. OXYCODONE HCL [Concomitant]
     Indication: PAIN
     Route: 048
     Dates: start: 20070101

REACTIONS (1)
  - ARRHYTHMIA SUPRAVENTRICULAR [None]
